FAERS Safety Report 9230694 (Version 1)
Quarter: 2013Q2

REPORT INFORMATION
  Report Type: Report from Study
  Country: US (occurrence: US)
  Receive Date: 20130415
  Receipt Date: 20130415
  Transmission Date: 20140414
  Serious: Yes (Death, Hospitalization, Other)
  Sender: FDA-Public Use
  Company Number: US-TEVA-392254USA

PATIENT
  Age: 18 Year
  Sex: Female

DRUGS (5)
  1. CLOZAPINE [Suspect]
     Indication: DISSOCIATIVE DISORDER
     Dosage: 125 MILLIGRAM DAILY;
     Route: 048
  2. LAMOTRIGINE [Concomitant]
     Indication: BIPOLAR DISORDER
     Dosage: 100 MILLIGRAM DAILY;
  3. LITHIUM [Concomitant]
     Indication: BIPOLAR DISORDER
  4. CLOMIPRAMINE [Concomitant]
     Indication: OBSESSIVE-COMPULSIVE DISORDER
  5. OMEPRAZOLE [Concomitant]
     Indication: GASTROOESOPHAGEAL REFLUX DISEASE
     Dosage: 20 MILLIGRAM DAILY;
     Route: 048

REACTIONS (2)
  - Meningitis bacterial [Fatal]
  - Brain abscess [Unknown]
